FAERS Safety Report 15967051 (Version 1)
Quarter: 2019Q1

REPORT INFORMATION
  Report Type: Report from Study
  Country: US (occurrence: US)
  Receive Date: 20190215
  Receipt Date: 20190215
  Transmission Date: 20190418
  Serious: Yes (Hospitalization)
  Sender: FDA-Public Use
  Company Number: US-SA-2019SA040272

PATIENT
  Age: 88 Year
  Sex: Male

DRUGS (1)
  1. DRONEDARONE [Suspect]
     Active Substance: DRONEDARONE
     Indication: MULTIPLE SCLEROSIS
     Dosage: UNK UNK, BID (UNKNOWN DOSE BY MOUTH TWICE DAILY)
     Route: 048
     Dates: start: 20000911

REACTIONS (4)
  - Cardiac disorder [Recovering/Resolving]
  - Dehydration [Recovering/Resolving]
  - Hypertension [Recovering/Resolving]
  - Product use in unapproved indication [Unknown]
